FAERS Safety Report 15494201 (Version 2)
Quarter: 2019Q1

REPORT INFORMATION
  Report Type: Spontaneous
  Country: DE (occurrence: US)
  Receive Date: 20181012
  Receipt Date: 20190124
  Transmission Date: 20190417
  Serious: Yes (Hospitalization, Other)
  Sender: FDA-Public Use
  Company Number: DE-PFIZER INC-2018405524

PATIENT
  Age: 66 Year
  Sex: Female
  Weight: 59.2 kg

DRUGS (8)
  1. LETROZOLE. [Concomitant]
     Active Substance: LETROZOLE
     Dosage: UNK
     Dates: start: 20170327
  2. XGEVA [Suspect]
     Active Substance: DENOSUMAB
     Indication: METASTASES TO BONE
     Dosage: UNK
     Route: 058
     Dates: start: 20170228
  3. VITAMIN D3-HEVERT [Concomitant]
     Indication: PROPHYLAXIS
     Dosage: UNK
     Dates: start: 20170209
  4. KALINOR [POTASSIUM CHLORIDE] [Concomitant]
     Indication: BREAST CANCER
     Dosage: UNK
     Dates: start: 20170906
  5. PALBOCICLIB [Suspect]
     Active Substance: PALBOCICLIB
     Indication: BREAST CANCER
     Dosage: 125 MG, 1X/DAY
     Route: 048
     Dates: start: 20170327
  6. L-THYROXIN-HENNING [Concomitant]
     Indication: THYROID FUNCTION TEST ABNORMAL
     Dosage: UNK
     Dates: start: 20170209
  7. ERYTHROZYTEN KONZENTRAT [Concomitant]
     Indication: ANAEMIA
     Dosage: UNK
     Dates: start: 20170328, end: 20170328
  8. CALCIUM D3 [Concomitant]
     Active Substance: CALCIUM\CHOLECALCIFEROL
     Indication: PROPHYLAXIS
     Dosage: UNK
     Dates: start: 20170209

REACTIONS (1)
  - Osteonecrosis of jaw [Recovered/Resolved]

NARRATIVE: CASE EVENT DATE: 20180417
